FAERS Safety Report 22647833 (Version 1)
Quarter: 2023Q2

REPORT INFORMATION
  Report Type: Report from Study
  Country: JP (occurrence: JP)
  Receive Date: 20230628
  Receipt Date: 20230628
  Transmission Date: 20230721
  Serious: Yes (Other)
  Sender: FDA-Public Use
  Company Number: JP-002147023-NVSJ2023JP008243

PATIENT
  Age: 73 Year
  Sex: Female

DRUGS (1)
  1. SCEMBLIX [Suspect]
     Active Substance: ASCIMINIB HYDROCHLORIDE
     Indication: Chronic myeloid leukaemia
     Dosage: 80 MG
     Route: 048
     Dates: start: 20230201, end: 20230228

REACTIONS (3)
  - Neuropathy peripheral [Recovering/Resolving]
  - Hypoaesthesia [Unknown]
  - Prurigo [Recovered/Resolved]

NARRATIVE: CASE EVENT DATE: 20230220
